FAERS Safety Report 6809070-4 (Version None)
Quarter: 2010Q2

REPORT INFORMATION
  Report Type: 
  Country: None (occurrence: None)
  Receive Date: 20100630
  Receipt Date: 20100618
  Transmission Date: 20101027
  Serious: No
  Sender: FDA-Public Use
  Company Number: US-BIOGENIDEC-2010BI015991

PATIENT
  Sex: Female

DRUGS (12)
  1. TYSABRI [Suspect]
     Indication: MULTIPLE SCLEROSIS
     Route: 042
     Dates: start: 20091214
  2. ACIPHEX [Concomitant]
     Route: 048
  3. AMARYL [Concomitant]
     Route: 048
  4. BENICAR [Concomitant]
     Route: 048
  5. CLONIDINE HCL [Concomitant]
     Route: 048
  6. INSULIN [Concomitant]
  7. CYNACOBALAMIN [Concomitant]
     Route: 030
  8. DYNACIRC [Concomitant]
     Route: 048
  9. LABETALOL HCL [Concomitant]
     Route: 048
  10. LANTUS [Concomitant]
  11. LEXAPRO [Concomitant]
  12. NOVOLOG [Concomitant]

REACTIONS (4)
  - HEMIPARESIS [None]
  - HYPERTENSION [None]
  - PRURITUS [None]
  - VASCULAR OCCLUSION [None]
